FAERS Safety Report 10697902 (Version 2)
Quarter: 2015Q1

REPORT INFORMATION
  Report Type: Spontaneous
  Country: IT (occurrence: None)
  Receive Date: 20150106
  Receipt Date: 20150331
  Transmission Date: 20150721
  Serious: Yes (Hospitalization)
  Sender: FDA-Public Use
  Company Number: 8003648

PATIENT
  Age: 58 Year
  Sex: Female

DRUGS (1)
  1. EUTIROX (LEVOTHYROXINE SODIUM) 75 MICROGRAM, TABLET) (LEVOTHYROXINE SODIUM) [Suspect]
     Active Substance: LEVOTHYROXINE SODIUM
     Indication: HYPOTHYROIDISM
     Route: 048
     Dates: start: 20141129, end: 20141129

REACTIONS (1)
  - Urticaria [None]

NARRATIVE: CASE EVENT DATE: 20141129
